FAERS Safety Report 18203975 (Version 2)
Quarter: 2021Q1

REPORT INFORMATION
  Report Type: Spontaneous
  Country: CA (occurrence: CA)
  Receive Date: 20200827
  Receipt Date: 20210223
  Transmission Date: 20210419
  Serious: Yes (Other)
  Sender: FDA-Public Use
  Company Number: CA-TEVA-2020-CA-1220495

PATIENT
  Age: 72 Year
  Sex: Male

DRUGS (3)
  1. CISPLATIN INJECTION [Suspect]
     Active Substance: CISPLATIN
     Indication: SMALL CELL LUNG CANCER METASTATIC
     Route: 065
  2. TECENTRIQ [Suspect]
     Active Substance: ATEZOLIZUMAB
     Indication: SMALL CELL LUNG CANCER METASTATIC
     Route: 042
  3. ETOPOSIDE. [Suspect]
     Active Substance: ETOPOSIDE
     Indication: SMALL CELL LUNG CANCER METASTATIC
     Route: 065

REACTIONS (7)
  - Asthenia [Unknown]
  - Blood pressure abnormal [Unknown]
  - Gait disturbance [Unknown]
  - Hallucination [Unknown]
  - Weight bearing difficulty [Unknown]
  - Cerebral disorder [Unknown]
  - Heart rate irregular [Unknown]
